FAERS Safety Report 6571061-9 (Version None)
Quarter: 2010Q1

REPORT INFORMATION
  Report Type: 
  Country: None (occurrence: None)
  Receive Date: 20100204
  Receipt Date: 20100128
  Transmission Date: 20100710
  Serious: Yes (Hospitalization)
  Sender: FDA-Public Use
  Company Number: IT-GENENTECH-295915

PATIENT
  Sex: Male

DRUGS (5)
  1. MABTHERA [Suspect]
     Indication: B-CELL LYMPHOMA
     Dosage: 375 MG/M2, UNK
     Route: 042
     Dates: start: 20090414, end: 20090823
  2. MABTHERA [Suspect]
     Dosage: UNK
     Route: 042
  3. FLUDARABINE [Suspect]
     Indication: B-CELL LYMPHOMA
     Dosage: 25 MG/M2, UNK
     Route: 042
     Dates: start: 20090414, end: 20090823
  4. ENDOXAN [Suspect]
     Indication: B-CELL LYMPHOMA
     Dosage: 200 MG/M2, UNK
     Route: 042
     Dates: start: 20090414, end: 20090823
  5. MITOXANTRONE [Suspect]
     Indication: B-CELL LYMPHOMA
     Dosage: 8 MG/M2, UNK
     Route: 042
     Dates: start: 20090414, end: 20090823

REACTIONS (2)
  - FEBRILE NEUTROPENIA [None]
  - THROMBOCYTOPENIA [None]
